FAERS Safety Report 7295472-1 (Version None)
Quarter: 2011Q1

REPORT INFORMATION
  Report Type: 
  Country: None (occurrence: None)
  Receive Date: 20110203
  Receipt Date: 20110127
  Transmission Date: 20110831
  Serious: Yes (Death, Hospitalization)
  Sender: FDA-Public Use
  Company Number: IDA-00493

PATIENT
  Age: 46 Year
  Sex: Female

DRUGS (2)
  1. PROPRANOLOL [Suspect]
     Dosage: 2.24 G ONCE
     Route: 048
  2. POTASSIUM CHLORATE [Concomitant]

REACTIONS (5)
  - SHOCK [None]
  - HYPERLACTACIDAEMIA [None]
  - TOXICITY TO VARIOUS AGENTS [None]
  - SINUS BRADYCARDIA [None]
  - MULTI-ORGAN FAILURE [None]
